FAERS Safety Report 20694941 (Version 1)
Quarter: 2022Q2

REPORT INFORMATION
  Report Type: Spontaneous
  Country: CA (occurrence: CA)
  Receive Date: 20220411
  Receipt Date: 20220411
  Transmission Date: 20220720
  Serious: Yes (Other)
  Sender: FDA-Public Use
  Company Number: CA-SA-SAC20220408001335

PATIENT
  Age: 72 Year
  Sex: Male

DRUGS (13)
  1. RANITIDINE [Suspect]
     Active Substance: RANITIDINE
  2. OXYCODONE HYDROCHLORIDE [Suspect]
     Active Substance: OXYCODONE HYDROCHLORIDE
  3. ASPIRIN [Suspect]
     Active Substance: ASPIRIN
  4. DULOXETINE HYDROCHLORIDE [Suspect]
     Active Substance: DULOXETINE HYDROCHLORIDE
  5. NORTRIPTYLINE [Suspect]
     Active Substance: NORTRIPTYLINE
  6. PANTOPRAZOLE [Suspect]
     Active Substance: PANTOPRAZOLE
  7. PREGABALIN [Suspect]
     Active Substance: PREGABALIN
  8. ALBUTEROL SULFATE [Suspect]
     Active Substance: ALBUTEROL SULFATE
  9. PROPRANOLOL HYDROCHLORIDE [Suspect]
     Active Substance: PROPRANOLOL HYDROCHLORIDE
  10. ROSUVASTATIN CALCIUM [Suspect]
     Active Substance: ROSUVASTATIN CALCIUM
  11. NITROGLYCERIN [Suspect]
     Active Substance: NITROGLYCERIN
  12. RAPAFLO [Suspect]
     Active Substance: SILODOSIN
  13. ACETAMINOPHEN [Suspect]
     Active Substance: ACETAMINOPHEN

REACTIONS (1)
  - Reversible airways obstruction [Unknown]
